FAERS Safety Report 19374975 (Version 8)
Quarter: 2022Q4

REPORT INFORMATION
  Report Type: Spontaneous
  Country: GB (occurrence: GB)
  Receive Date: 20210604
  Receipt Date: 20221117
  Transmission Date: 20230113
  Serious: Yes (Hospitalization, Other)
  Sender: FDA-Public Use
  Company Number: GB-VERTEX PHARMACEUTICALS-2021-008381

PATIENT
  Age: 17 Year
  Sex: Female

DRUGS (18)
  1. ELEXACAFTOR\IVACAFTOR\TEZACAFTOR [Suspect]
     Active Substance: ELEXACAFTOR\IVACAFTOR\TEZACAFTOR
     Indication: Cystic fibrosis
     Dosage: 2 TABLETS (100MG IVACAFTOR/50MG TEZACAFTOR/100MG ELEXACAFTOR) AM
     Route: 048
     Dates: start: 202011, end: 202105
  2. ELEXACAFTOR\IVACAFTOR\TEZACAFTOR [Suspect]
     Active Substance: ELEXACAFTOR\IVACAFTOR\TEZACAFTOR
     Dosage: 1 TAB IN MORNING
     Route: 048
     Dates: start: 2021, end: 2021
  3. ELEXACAFTOR\IVACAFTOR\TEZACAFTOR [Suspect]
     Active Substance: ELEXACAFTOR\IVACAFTOR\TEZACAFTOR
     Dosage: 2 TABS IN AM, ALTERNATING WITH 1 TAB IN AM ON ALTERNATE DAYS (LOWER DOSE)
     Route: 048
     Dates: start: 2021
  4. ELEXACAFTOR\IVACAFTOR\TEZACAFTOR [Suspect]
     Active Substance: ELEXACAFTOR\IVACAFTOR\TEZACAFTOR
     Dosage: LOWER DOSE
     Route: 048
  5. ELEXACAFTOR\IVACAFTOR\TEZACAFTOR [Suspect]
     Active Substance: ELEXACAFTOR\IVACAFTOR\TEZACAFTOR
     Dosage: SLOWLY INCREASED
     Route: 048
     Dates: start: 20220628
  6. KALYDECO [Suspect]
     Active Substance: IVACAFTOR
     Indication: Cystic fibrosis
     Dosage: 1 TAB(150MG IVACAFTOR)PM
     Route: 048
     Dates: start: 202011, end: 202105
  7. KALYDECO [Suspect]
     Active Substance: IVACAFTOR
     Dosage: REDUCED DOSE
     Route: 048
     Dates: start: 2021, end: 2021
  8. KALYDECO [Suspect]
     Active Substance: IVACAFTOR
     Dosage: TABS IN AM, ALTERNATING WITH 1 TAB IN AM ON ALTERNATE DAYS (LOWER DOSE)
     Route: 048
     Dates: start: 2021
  9. KALYDECO [Suspect]
     Active Substance: IVACAFTOR
     Dosage: SLOWLY INCREASED
     Route: 048
     Dates: start: 20220628
  10. MELATONIN [Concomitant]
     Active Substance: MELATONIN
  11. FLUOXETINE [Concomitant]
     Active Substance: FLUOXETINE HYDROCHLORIDE
  12. SULFAMETHOXAZOLE\TRIMETHOPRIM [Concomitant]
     Active Substance: SULFAMETHOXAZOLE\TRIMETHOPRIM
  13. CALCIUM CARBONATE\CHOLECALCIFEROL [Concomitant]
     Active Substance: CALCIUM CARBONATE\CHOLECALCIFEROL
  14. OMEPRAZOLE [Concomitant]
     Active Substance: OMEPRAZOLE
  15. ERGOCALCIFEROL\RETINOL [Concomitant]
     Active Substance: ERGOCALCIFEROL\RETINOL
  16. PULMOZYME [Concomitant]
     Active Substance: DORNASE ALFA
  17. SERETIDE [Concomitant]
     Active Substance: FLUTICASONE PROPIONATE\SALMETEROL XINAFOATE
  18. ALBUTEROL [Concomitant]
     Active Substance: ALBUTEROL

REACTIONS (7)
  - Hypophagia [Unknown]
  - Suicidal ideation [Recovering/Resolving]
  - Intentional self-injury [Recovering/Resolving]
  - Cystic fibrosis [Unknown]
  - Depression [Recovering/Resolving]
  - Weight decreased [Recovered/Resolved]
  - Forced expiratory volume decreased [Recovered/Resolved]

NARRATIVE: CASE EVENT DATE: 20210101
